FAERS Safety Report 7706758-8 (Version None)
Quarter: 2011Q3

REPORT INFORMATION
  Report Type: 
  Country: None (occurrence: None)
  Receive Date: 20110824
  Receipt Date: 20110818
  Transmission Date: 20111222
  Serious: Yes (Hospitalization, Other)
  Sender: FDA-Public Use
  Company Number: US-PFIZER INC-2007036605

PATIENT
  Sex: Female

DRUGS (1)
  1. NEURONTIN [Suspect]
     Indication: PARAESTHESIA
     Dosage: UNK
     Dates: start: 20030201

REACTIONS (9)
  - MEMORY IMPAIRMENT [None]
  - THINKING ABNORMAL [None]
  - GAIT DISTURBANCE [None]
  - CEREBROVASCULAR ACCIDENT [None]
  - SUICIDAL IDEATION [None]
  - VISUAL IMPAIRMENT [None]
  - DRUG INEFFECTIVE FOR UNAPPROVED INDICATION [None]
  - SPEECH DISORDER [None]
  - BALANCE DISORDER [None]
